FAERS Safety Report 8738176 (Version 6)
Quarter: 2016Q2

REPORT INFORMATION
  Report Type: Spontaneous
  Country: US (occurrence: US)
  Receive Date: 20120823
  Receipt Date: 20160516
  Transmission Date: 20160815
  Serious: Yes (Hospitalization, Other)
  Sender: FDA-Public Use
  Company Number: US-009507513-1208USA005808

PATIENT
  Sex: Female
  Weight: 73.92 kg

DRUGS (4)
  1. FOSAMAX PLUS D [Suspect]
     Active Substance: ALENDRONATE SODIUM\CHOLECALCIFEROL
     Indication: OSTEOPOROSIS
     Dosage: 70 MG, QW
     Route: 048
     Dates: start: 2002, end: 201008
  2. FOSAMAX [Suspect]
     Active Substance: ALENDRONATE SODIUM
     Dosage: 70 MG, QW
     Route: 048
     Dates: end: 201008
  3. ALENDRONATE SODIUM. [Suspect]
     Active Substance: ALENDRONATE SODIUM
     Dosage: 70 MG, QW
     Route: 048
     Dates: start: 20080711
  4. FOSAMAX [Suspect]
     Active Substance: ALENDRONATE SODIUM
     Indication: OSTEOPOROSIS
     Dosage: 10 MG, QD
     Route: 048
     Dates: start: 199912, end: 2002

REACTIONS (14)
  - Hypothyroidism [Unknown]
  - Osteoarthritis [Not Recovered/Not Resolved]
  - Joint arthroplasty [Unknown]
  - Haemorrhagic anaemia [Unknown]
  - Sternal fracture [Recovering/Resolving]
  - Fracture nonunion [Unknown]
  - Spinal operation [Unknown]
  - Femur fracture [Recovering/Resolving]
  - Intervertebral disc degeneration [Unknown]
  - Osteoarthritis [Unknown]
  - Depression [Unknown]
  - Hypertension [Unknown]
  - Knee deformity [Unknown]
  - Radiculopathy [Unknown]

NARRATIVE: CASE EVENT DATE: 2007
